FAERS Safety Report 15147237 (Version 1)
Quarter: 2018Q3

REPORT INFORMATION
  Report Type: Spontaneous
  Country: GB (occurrence: GB)
  Receive Date: 20180716
  Receipt Date: 20180716
  Transmission Date: 20181010
  Serious: Yes (Hospitalization)
  Sender: FDA-Public Use
  Company Number: GB-TEVA-2018-GB-925435

PATIENT
  Age: 68 Year
  Sex: Male
  Weight: 93 kg

DRUGS (32)
  1. DEXAMETHASONE. [Suspect]
     Active Substance: DEXAMETHASONE
     Route: 048
     Dates: start: 20160518, end: 20160610
  2. DARATUMUMAB [Concomitant]
     Active Substance: DARATUMUMAB
     Dosage: DOSE REDUCED
     Route: 041
     Dates: start: 20160610, end: 20160624
  3. MOVICOL [Concomitant]
     Active Substance: POLYETHYLENE GLYCOL 3350\POTASSIUM CHLORIDE\SODIUM BICARBONATE\SODIUM CHLORIDE
     Indication: CONSTIPATION
     Route: 048
     Dates: start: 20160505
  4. REVLIMID [Suspect]
     Active Substance: LENALIDOMIDE
     Indication: PLASMA CELL MYELOMA
     Dosage: 15 MILLIGRAM
     Route: 048
     Dates: start: 20160624
  5. GLICLAZIDE [Concomitant]
     Active Substance: GLICLAZIDE
     Indication: TYPE 2 DIABETES MELLITUS
     Dosage: 240 MILLIGRAM DAILY;
     Route: 048
  6. VENTOLIN [Concomitant]
     Active Substance: ALBUTEROL SULFATE
     Indication: LOWER RESPIRATORY TRACT INFECTION
     Route: 055
     Dates: start: 20170309
  7. QUININE [Concomitant]
     Active Substance: QUININE
     Indication: MUSCLE SPASMS
     Route: 048
  8. OXYCODONE [Concomitant]
     Active Substance: OXYCODONE
     Indication: BACK PAIN
     Dosage: 40 MILLIGRAM DAILY; 40 MILLIGRAM
     Route: 048
  9. AMITRIPTYLINE [Concomitant]
     Active Substance: AMITRIPTYLINE
     Indication: BACK PAIN
     Dosage: 10 MILLIGRAM DAILY; 10 MILLIGRAM
     Route: 048
  10. BISOPROLOL [Concomitant]
     Active Substance: BISOPROLOL
     Indication: ATRIAL FIBRILLATION
     Route: 048
     Dates: start: 20160312
  11. CHLORPHENAMINE [Concomitant]
     Active Substance: CHLORPHENIRAMINE MALEATE
     Indication: SKIN ULCER
     Route: 065
  12. VALSARTAN. [Concomitant]
     Active Substance: VALSARTAN
     Indication: HYPERTENSION
     Dosage: 160 MILLIGRAM DAILY; 160 MILLIGRAM
     Route: 048
  13. ACICLOVIR [Concomitant]
     Active Substance: ACYCLOVIR
     Indication: ANTIVIRAL PROPHYLAXIS
     Dosage: 800 MILLIGRAM DAILY; 800 MILLIGRAM
     Route: 048
     Dates: start: 20160518
  14. REVLIMID [Suspect]
     Active Substance: LENALIDOMIDE
     Route: 048
     Dates: start: 20160518, end: 20170610
  15. RIVAROXABAN [Concomitant]
     Active Substance: RIVAROXABAN
     Indication: ATRIAL FIBRILLATION
     Dosage: 20 MILLIGRAM DAILY; 20 MILLIGRAM
     Route: 048
     Dates: start: 20160520
  16. GLICLAZIDE [Concomitant]
     Active Substance: GLICLAZIDE
     Dosage: 40 MILLIGRAM DAILY; REDUCED DOSE
     Route: 048
     Dates: start: 201710
  17. FOLIC ACID. [Concomitant]
     Active Substance: FOLIC ACID
     Indication: FOLATE DEFICIENCY
     Dosage: 5 MILLIGRAM DAILY; 5 MILLIGRAM
     Route: 065
     Dates: start: 20170425
  18. AMLODIPINE [Concomitant]
     Active Substance: AMLODIPINE BESYLATE
     Indication: HYPERTENSION
     Dosage: 10 MILLIGRAM DAILY; 10 MILLIGRAM
     Route: 048
  19. REVLIMID [Suspect]
     Active Substance: LENALIDOMIDE
     Route: 054
     Dates: start: 20170610, end: 20170624
  20. ZOLEDRONIC ACID [Concomitant]
     Active Substance: ZOLEDRONIC ACID
     Indication: ADVERSE EVENT
     Route: 041
     Dates: start: 20170722
  21. ATORVASTATIN [Concomitant]
     Active Substance: ATORVASTATIN
     Indication: HYPERTENSION
     Dosage: 10 MILLIGRAM DAILY; 10 MILLIGRAM
     Route: 048
  22. DARATUMUMAB [Concomitant]
     Active Substance: DARATUMUMAB
     Indication: PLASMA CELL MYELOMA
     Dosage: 56.5714 MILLIGRAM
     Route: 041
     Dates: start: 20160518, end: 20160610
  23. DARATUMUMAB [Concomitant]
     Active Substance: DARATUMUMAB
     Dosage: DOSE REDUCED
     Route: 041
     Dates: start: 20160624
  24. OMEPRAZOLE. [Concomitant]
     Active Substance: OMEPRAZOLE
     Indication: PROPHYLAXIS
     Dosage: 20 MILLIGRAM DAILY; 20 MILLIGRAM
     Route: 048
     Dates: start: 20170518
  25. CALCIUM CARBONATE. [Concomitant]
     Active Substance: CALCIUM CARBONATE
     Indication: PROPHYLAXIS
     Dosage: 1500 MILLIGRAM DAILY; 1500 MILLIGRAM
     Route: 048
  26. ACETYLSALICYLIC ACID [Concomitant]
     Active Substance: ASPIRIN
     Indication: HYPERTENSION
     Dosage: 150 MILLIGRAM DAILY; 150 MILLIGRAM
     Route: 048
  27. DARBEPOETIN ALFA [Concomitant]
     Active Substance: DARBEPOETIN ALFA
     Indication: ANAEMIA
     Route: 058
     Dates: start: 20170131
  28. DARBEPOETIN ALFA [Concomitant]
     Active Substance: DARBEPOETIN ALFA
     Route: 058
     Dates: start: 20170821
  29. DEXAMETHASONE. [Suspect]
     Active Substance: DEXAMETHASONE
     Indication: PLASMA CELL MYELOMA
     Dosage: DOSE REDUCED
     Route: 048
     Dates: start: 20160610, end: 20160624
  30. DEXAMETHASONE. [Suspect]
     Active Substance: DEXAMETHASONE
     Route: 048
     Dates: start: 20160624
  31. COTRIMOXAZOLE [Concomitant]
     Active Substance: SULFAMETHOXAZOLE\TRIMETHOPRIM
     Indication: PROPHYLAXIS
     Route: 048
     Dates: start: 20160518
  32. SITAGLIPTIN [Concomitant]
     Active Substance: SITAGLIPTIN
     Indication: TYPE 2 DIABETES MELLITUS
     Dosage: 100 MILLIGRAM DAILY; 100 MILLIGRAM
     Route: 048

REACTIONS (1)
  - Lower respiratory tract infection [Recovered/Resolved]

NARRATIVE: CASE EVENT DATE: 20171014
